FAERS Safety Report 5139475-1 (Version None)
Quarter: 2006Q4

REPORT INFORMATION
  Report Type: 
  Country: None (occurrence: None)
  Receive Date: 20061026
  Receipt Date: 20061026
  Transmission Date: 20070319
  Serious: Yes (Life-Threatening, Hospitalization, Disabling, Other)
  Sender: FDA-Public Use
  Company Number: None

PATIENT
  Age: 59 Year
  Sex: Female
  Weight: 92.9874 kg

DRUGS (5)
  1. NABUMETONE [Suspect]
     Indication: RHEUMATOID ARTHRITIS
     Dosage: 500 MG TWICE A DAY ORAL
     Route: 048
     Dates: start: 20051213, end: 20060501
  2. PROLIXIN [Concomitant]
  3. COGENTIN [Concomitant]
  4. ATIVAN [Concomitant]
  5. TRAZODONE HCL [Concomitant]

REACTIONS (6)
  - ASTHMA [None]
  - CARDIAC ARREST [None]
  - CARDIAC FAILURE [None]
  - CARDIO-RESPIRATORY ARREST [None]
  - COMA [None]
  - LOSS OF CONSCIOUSNESS [None]
